FAERS Safety Report 17561851 (Version 1)
Quarter: 2020Q1

REPORT INFORMATION
  Report Type: Spontaneous
  Country: GB (occurrence: GB)
  Receive Date: 20200319
  Receipt Date: 20200319
  Transmission Date: 20200409
  Serious: Yes (Life-Threatening, Hospitalization, Disabling)
  Sender: FDA-Public Use
  Company Number: GB-TEVA-2020-GB-1203109

PATIENT
  Age: 76 Year
  Sex: Female
  Weight: 61 kg

DRUGS (1)
  1. DULOXETINE. [Suspect]
     Active Substance: DULOXETINE
     Dosage: 60MG
     Dates: start: 20200213, end: 20200213

REACTIONS (3)
  - Malaise [Recovered/Resolved with Sequelae]
  - Renal injury [Unknown]
  - Muscle disorder [Unknown]

NARRATIVE: CASE EVENT DATE: 20200213
